FAERS Safety Report 9034765 (Version 1)
Quarter: 2013Q1

REPORT INFORMATION
  Report Type: Spontaneous
  Country: CH (occurrence: None)
  Receive Date: 20130110
  Receipt Date: 20130110
  Transmission Date: 20140127
  Serious: Yes (Hospitalization)
  Sender: FDA-Public Use
  Company Number: 201310010

PATIENT
  Age: 84 Year
  Sex: Male
  Weight: 64 kg

DRUGS (10)
  1. TOREM (TORASEMIDE) [Suspect]
     Indication: ESSENTIAL HYPERTENSION
     Dosage: (250 MG, 1 IN 1 D)
     Route: 048
     Dates: start: 2006, end: 20121128
  2. MARCOUMAR (PHENPROCOUMON) [Suspect]
     Indication: ATRIAL FIBRILLATION
     Dosage: AS REQUIRED (3 MG,AS REQUIRED),ORAL
     Route: 048
  3. MARCOUMAR (PHENPROCOUMON) [Suspect]
     Indication: ATRIAL FLUTTER
     Dosage: AS REQUIRED (3 MG,AS REQUIRED),ORAL
     Route: 048
  4. ASPIRIN CARDIO FILMTABLETTEN (ACETYLSALICYLIC ACID) [Suspect]
     Indication: ARTERIOSCLEROSIS
     Dosage: (100 MG, 1 IN 1 D)
     Route: 048
  5. METOLAZON (METOLAZONE) [Suspect]
     Indication: ESSENTIAL HYPERTENSION
     Dosage: (7.5 MG, 1 IN 1 D)
     Route: 048
     Dates: end: 20121127
  6. TRIATEC (RAMIPRIL) [Suspect]
  7. BELOC (METOPROLOL) [Concomitant]
  8. SORTIS (ATORVASTATIN CALCIUM) [Concomitant]
  9. PANTOZOL (PANTOPRAZOLE SODIUM SESQUIHYDRATE) [Concomitant]
  10. PRADIF (TAMSULOSIN HYDROCHLORIDE) [Concomitant]

REACTIONS (5)
  - Renal failure acute [None]
  - Hyperkalaemia [None]
  - Melaena [None]
  - Haemorrhagic anaemia [None]
  - Gastrointestinal haemorrhage [None]
